FAERS Safety Report 9378172 (Version 3)
Quarter: 2013Q3

REPORT INFORMATION
  Report Type: Spontaneous
  Country: GB (occurrence: GB)
  Receive Date: 20130701
  Receipt Date: 20130903
  Transmission Date: 20140515
  Serious: Yes (Other)
  Sender: FDA-Public Use
  Company Number: GB-GLAXOSMITHKLINE-B0902865A

PATIENT
  Age: 57 Year
  Sex: Female

DRUGS (3)
  1. AVANDIA [Suspect]
     Indication: PRODUCT USED FOR UNKNOWN INDICATION
     Route: 065
  2. METFORMIN [Concomitant]
  3. GLICLAZIDE [Concomitant]

REACTIONS (1)
  - Cerebrovascular accident [Unknown]
